FAERS Safety Report 4349589-1 (Version None)
Quarter: 2004Q1

REPORT INFORMATION
  Report Type: 
  Country: None (occurrence: None)
  Receive Date: 20040329
  Receipt Date: 20031202
  Transmission Date: 20041129
  Serious: No
  Sender: FDA-Public Use
  Company Number: USA031253769

PATIENT
  Sex: Male

DRUGS (4)
  1. STRATTERA [Suspect]
     Indication: ABNORMAL BEHAVIOUR
     Dosage: 40 MG/DAY
     Dates: start: 20031101
  2. TRAZODONE HCL [Concomitant]
  3. WELLBUTRIN [Concomitant]
  4. AMBIEN [Concomitant]

REACTIONS (11)
  - ABNORMAL BEHAVIOUR [None]
  - ASTHENOPIA [None]
  - BACK PAIN [None]
  - MIGRAINE [None]
  - NAUSEA [None]
  - NECK PAIN [None]
  - PANIC ATTACK [None]
  - SOMNOLENCE [None]
  - TENSION [None]
  - TREMOR [None]
  - VISION BLURRED [None]
